FAERS Safety Report 10880531 (Version 1)
Quarter: 2015Q1

REPORT INFORMATION
  Report Type: Spontaneous
  Country: ES (occurrence: ES)
  Receive Date: 20150303
  Receipt Date: 20150303
  Transmission Date: 20150721
  Serious: Yes (Other)
  Sender: FDA-Public Use
  Company Number: ES-UCBSA-2015005376

PATIENT
  Age: 59 Year
  Sex: Male
  Weight: 66 kg

DRUGS (1)
  1. CIMZIA [Suspect]
     Active Substance: CERTOLIZUMAB PEGOL
     Indication: RHEUMATOID ARTHRITIS
     Dosage: 200 MG/ CADA 15 DIAS
     Route: 058
     Dates: start: 20140627, end: 20141010

REACTIONS (1)
  - Groin abscess [Recovered/Resolved]

NARRATIVE: CASE EVENT DATE: 20141010
